FAERS Safety Report 16329667 (Version 1)
Quarter: 2019Q2

REPORT INFORMATION
  Report Type: Spontaneous
  Country: IL (occurrence: IL)
  Receive Date: 20190520
  Receipt Date: 20190520
  Transmission Date: 20190711
  Serious: Yes (Death, Other)
  Sender: FDA-Public Use
  Company Number: IL-009507513-1905ISR006990

PATIENT
  Age: 50 Year
  Sex: Male

DRUGS (1)
  1. KEYTRUDA [Suspect]
     Active Substance: PEMBROLIZUMAB
     Indication: NON-SMALL CELL LUNG CANCER
     Dosage: UNK

REACTIONS (2)
  - Malignant neoplasm progression [Unknown]
  - Death [Fatal]

NARRATIVE: CASE EVENT DATE: 201904
